FAERS Safety Report 8472799-9 (Version None)
Quarter: 2012Q2

REPORT INFORMATION
  Report Type: 
  Country: None (occurrence: None)
  Receive Date: 20120622
  Receipt Date: 20120622
  Transmission Date: 20120825
  Serious: Yes (Death)
  Sender: FDA-Public Use
  Company Number: None

PATIENT
  Age: 82 Year
  Sex: Male
  Weight: 58.1 kg

DRUGS (26)
  1. ALTEPLASE 100 MG W/ DILUTION GENENTECH [Suspect]
     Indication: ISCHAEMIC STROKE
     Dosage: 7.695 MG ONCE IV BOLUS 69.255 ONCE IV
     Route: 040
     Dates: start: 20120531, end: 20120531
  2. DORZOLAMIDE HYDROCHLORIDE AND TIMOLOL MALEATE [Concomitant]
  3. POTASSIUM CHLORIDE [Concomitant]
  4. AZITHROMYCIN [Concomitant]
  5. CEFTRIAXONE [Concomitant]
  6. CHLORHEXIDINE GLUCONATE [Concomitant]
  7. PROPOFOL [Concomitant]
  8. SODIUM CHLORIDE [Concomitant]
  9. REGULAR INSULIN [Concomitant]
  10. ATORVASTATIN [Concomitant]
  11. LABETALOL HCL [Concomitant]
  12. ENOXAPARIN [Concomitant]
  13. LEVOFLOXACIN [Concomitant]
  14. ZOSYN [Concomitant]
  15. SOLN [Concomitant]
  16. ACETAMINOPHEN [Concomitant]
  17. ETOMIDATEC [Concomitant]
  18. MANNITOL [Concomitant]
  19. FENTANYL [Concomitant]
  20. DEXTROSE [Concomitant]
  21. ALTEPLASE [Concomitant]
  22. ONDANSETRON [Concomitant]
  23. PANTOPRAZOLE [Concomitant]
  24. VANCOMYCIN [Concomitant]
  25. METOPROLOL SUCCINATE [Concomitant]
  26. ROCURONIUM BROMIDE [Concomitant]

REACTIONS (2)
  - HAEMORRHAGE [None]
  - INCORRECT DOSE ADMINISTERED [None]
